FAERS Safety Report 13483595 (Version 1)
Quarter: 2017Q2

REPORT INFORMATION
  Report Type: Spontaneous
  Country: US (occurrence: US)
  Receive Date: 20170425
  Receipt Date: 20170425
  Transmission Date: 20170830
  Serious: Yes (Other)
  Sender: FDA-Public Use
  Company Number: None

PATIENT
  Age: 33 Year
  Sex: Male

DRUGS (1)
  1. AZITHROMYCIN 600MG PLIVA INC. [Suspect]
     Active Substance: AZITHROMYCIN
     Indication: HIV INFECTION
     Dosage: 30TAB QD ORALLY
     Route: 048
     Dates: start: 20160627, end: 20170307

REACTIONS (7)
  - Pruritus [None]
  - Hyperhidrosis [None]
  - Headache [None]
  - Fatigue [None]
  - Rash [None]
  - Nausea [None]
  - Therapy cessation [None]

NARRATIVE: CASE EVENT DATE: 20170327
